FAERS Safety Report 21904320 (Version 1)
Quarter: 2023Q1

REPORT INFORMATION
  Report Type: Spontaneous
  Country: US (occurrence: None)
  Receive Date: 20230124
  Receipt Date: 20230124
  Transmission Date: 20230417
  Serious: Yes (Hospitalization)
  Sender: FDA-Public Use
  Company Number: None

PATIENT
  Age: 52 Year
  Sex: Male
  Weight: 88.5 kg

DRUGS (3)
  1. ACALABRUTINIB [Suspect]
     Active Substance: ACALABRUTINIB
     Dates: end: 20230121
  2. BENDAMUSTINE HYDROCHLORIDE [Suspect]
     Active Substance: BENDAMUSTINE HYDROCHLORIDE
     Dates: end: 20230112
  3. RITUXIMAB [Suspect]
     Active Substance: RITUXIMAB
     Dates: end: 20230112

REACTIONS (5)
  - Pyrexia [None]
  - Chills [None]
  - Hot flush [None]
  - Sinus tachycardia [None]
  - Acute kidney injury [None]

NARRATIVE: CASE EVENT DATE: 20230121
